FAERS Safety Report 8575587-8 (Version None)
Quarter: 2012Q3

REPORT INFORMATION
  Report Type: 
  Country: None (occurrence: None)
  Receive Date: 20120807
  Receipt Date: 20120731
  Transmission Date: 20120928
  Serious: Yes (Death)
  Sender: FDA-Public Use
  Company Number: US-ASTELLAS-2012US006418

PATIENT
  Sex: Female

DRUGS (2)
  1. GEMCITABINE HYDROCHLORIDE [Suspect]
     Indication: PANCREATIC CARCINOMA STAGE IV
     Dosage: UNK
     Route: 065
  2. TARCEVA [Suspect]
     Indication: PANCREATIC CARCINOMA STAGE IV
     Dosage: UNK
     Route: 048

REACTIONS (1)
  - DEATH [None]
